FAERS Safety Report 24004497 (Version 3)
Quarter: 2024Q3

REPORT INFORMATION
  Report Type: Spontaneous
  Country: AU (occurrence: AU)
  Receive Date: 20240624
  Receipt Date: 20240920
  Transmission Date: 20241017
  Serious: Yes (Other)
  Sender: MYLAN
  Company Number: AU-MYLANLABS-2024M1038221

PATIENT
  Age: 57 Year
  Sex: Female

DRUGS (18)
  1. CLOZARIL [Suspect]
     Active Substance: CLOZAPINE
     Indication: Schizophrenia
     Dosage: 175 MILLIGRAM (100MG IN THE EVENING AS DIRECTED AT NIGHT, 3 OF 25MG AT NIGHT)
     Route: 048
     Dates: start: 20051129
  2. BETAMETHASONE VALERATE [Concomitant]
     Active Substance: BETAMETHASONE VALERATE
     Indication: Psoriasis
     Dosage: 1 APPLICATION, APPLY SMALL AMOUNT TO AFFECTED AREA 2-3 TIMES DAILY.
     Route: 065
  3. BETAMETHASONE VALERATE [Concomitant]
     Active Substance: BETAMETHASONE VALERATE
     Indication: Dermatosis
  4. ASPIRIN [Concomitant]
     Active Substance: ASPIRIN
     Dosage: 1 DOSAGE FORM, QD (DAILY)
     Route: 065
  5. ATENOLOL [Concomitant]
     Active Substance: ATENOLOL
     Dosage: 1 DOSAGE FORM, QD (DAILY)
     Route: 065
  6. BETAMETHASONE VALERATE [Concomitant]
     Active Substance: BETAMETHASONE VALERATE
     Dosage: UNK, TID (APPLY TDS)
     Route: 065
  7. CELESTONE M [Concomitant]
     Dosage: UNK, TID (APPLY TDS PRN)
     Route: 065
  8. ELOCON [Concomitant]
     Active Substance: MOMETASONE FUROATE
     Dosage: UNK (APPLY SMALL AMOUNT BEFORE BED.)
     Route: 065
  9. JANUMET [Concomitant]
     Active Substance: METFORMIN HYDROCHLORIDE\SITAGLIPTIN PHOSPHATE
     Dosage: 1 DOSAGE FORM, BID (WITH MEAL)
     Route: 065
  10. OMEPRAZOLE [Concomitant]
     Active Substance: OMEPRAZOLE
     Dosage: 1 DOSAGE FORM, QD (DAILY)
     Route: 065
  11. Optisulin [Concomitant]
     Dosage: 22 UNITS AT NIGHT
     Route: 065
  12. CHOLECALCIFEROL [Concomitant]
     Active Substance: CHOLECALCIFEROL
     Dosage: UNK, QD (3 DAILY FOR ONE MONTH THEN 2 DAILY FOR NEXT MONTH THEN ONE DAILY LONGTERM)
     Route: 065
  13. ACETAMINOPHEN [Concomitant]
     Active Substance: ACETAMINOPHEN
     Dosage: 2 DOSAGE FORM, TID (PRN)
     Route: 065
  14. OZEMPIC [Concomitant]
     Active Substance: SEMAGLUTIDE
     Dosage: UNK (CEASE GLICLAZIDE, MAY BE TAKEN WITH OR WITHOUT FOOD. USE 0.25/0.5 MG PER DOSE (1.5 ML PEN) FOR
     Route: 065
  15. ROSUVASTATIN [Concomitant]
     Active Substance: ROSUVASTATIN\ROSUVASTATIN CALCIUM
     Dosage: 1 DOSAGE FORM, QD (DAILY)
     Route: 065
  16. SELEMITE B [Concomitant]
     Dosage: 2 DOSAGE FORM, QD (DAILY)
     Route: 065
  17. SYMBICORT [Concomitant]
     Active Substance: BUDESONIDE\FORMOTEROL FUMARATE DIHYDRATE
     Dosage: UNK, BID (2 PUFFS)
     Route: 065
  18. CLOTRIMAZOLE\HYDROCORTISONE [Concomitant]
     Active Substance: CLOTRIMAZOLE\HYDROCORTISONE
     Dosage: UNK, TID (1 APPLICATION THREE TIMES A DAY FOR PERI ANAL AREA - SCANTY AMOUNT))
     Route: 065

REACTIONS (20)
  - White blood cells urine positive [Unknown]
  - Urinary sediment present [Unknown]
  - Protein total decreased [Recovered/Resolved]
  - Blood albumin decreased [Recovered/Resolved]
  - Blood test abnormal [Not Recovered/Not Resolved]
  - Glomerular filtration rate decreased [Not Recovered/Not Resolved]
  - Antipsychotic drug level decreased [Not Recovered/Not Resolved]
  - Mean cell volume increased [Recovering/Resolving]
  - Red blood cell count decreased [Recovering/Resolving]
  - Mean cell haemoglobin concentration decreased [Recovering/Resolving]
  - Blood urea increased [Not Recovered/Not Resolved]
  - Blood alkaline phosphatase increased [Not Recovered/Not Resolved]
  - Lymphocyte count decreased [Recovered/Resolved]
  - Blood creatine increased [Not Recovered/Not Resolved]
  - Blood glucose increased [Not Recovered/Not Resolved]
  - Gamma-glutamyltransferase increased [Recovering/Resolving]
  - Aspartate aminotransferase increased [Recovered/Resolved]
  - Alanine aminotransferase increased [Not Recovered/Not Resolved]
  - Haemoglobin decreased [Recovered/Resolved]
  - Transferrin decreased [Recovered/Resolved]

NARRATIVE: CASE EVENT DATE: 20230403
